FAERS Safety Report 14147639 (Version 1)
Quarter: 2017Q4

REPORT INFORMATION
  Report Type: Spontaneous
  Country: US (occurrence: US)
  Receive Date: 20171031
  Receipt Date: 20171031
  Transmission Date: 20180321
  Serious: No
  Sender: FDA-Public Use
  Company Number: US-ROMARKLABS-2016-US-000099

PATIENT
  Age: 64 Year
  Sex: Male
  Weight: 84.82 kg

DRUGS (4)
  1. AMBIEN [Concomitant]
     Active Substance: ZOLPIDEM TARTRATE
     Dosage: AS NEEDED
     Route: 048
  2. ALINIA [Suspect]
     Active Substance: NITAZOXANIDE
     Indication: DIARRHOEA
     Dosage: 1 TABLET EVERY 12 HOURS
     Route: 048
     Dates: start: 20161026, end: 20161105
  3. LEVOTHYROXINE. [Concomitant]
     Active Substance: LEVOTHYROXINE
     Indication: HYPOTHYROIDISM
     Dosage: ONCE PER DAY
     Route: 048
     Dates: start: 20140110
  4. LORAZEPAM. [Concomitant]
     Active Substance: LORAZEPAM
     Indication: STRESS
     Dosage: 2 PER DAY AS NEEDED
     Route: 048

REACTIONS (5)
  - Diarrhoea [Recovering/Resolving]
  - Weight decreased [Unknown]
  - Abdominal pain upper [Recovering/Resolving]
  - Colitis [Unknown]
  - Asthenia [Unknown]

NARRATIVE: CASE EVENT DATE: 201610
